FAERS Safety Report 19257547 (Version 1)
Quarter: 2021Q2

REPORT INFORMATION
  Report Type: Spontaneous
  Country: US (occurrence: US)
  Receive Date: 20210513
  Receipt Date: 20210513
  Transmission Date: 20210717
  Serious: No
  Sender: FDA-Public Use
  Company Number: None

PATIENT
  Age: 73 Year
  Sex: Male

DRUGS (5)
  1. KEPPRA XR [Concomitant]
     Active Substance: LEVETIRACETAM
  2. TEMOZOLOMIDE 180 MG [Suspect]
     Active Substance: TEMOZOLOMIDE
  3. LORAZEPAM. [Concomitant]
     Active Substance: LORAZEPAM
  4. ONDANSETRON HCL [Concomitant]
     Active Substance: ONDANSETRON HYDROCHLORIDE
  5. VIMPAT [Concomitant]
     Active Substance: LACOSAMIDE

REACTIONS (1)
  - Hospitalisation [None]

NARRATIVE: CASE EVENT DATE: 20210513
